FAERS Safety Report 18568009 (Version 3)
Quarter: 2021Q1

REPORT INFORMATION
  Report Type: Spontaneous
  Country: GB (occurrence: GB)
  Receive Date: 20201202
  Receipt Date: 20210112
  Transmission Date: 20210419
  Serious: Yes (Other)
  Sender: FDA-Public Use
  Company Number: GB-CELLTRION INC.-2020GB031068

PATIENT

DRUGS (2)
  1. REMSIMA [Suspect]
     Active Substance: INFLIXIMAB
     Indication: PSORIATIC ARTHROPATHY
     Dosage: 120 MG PREFILLED PEN, EVERY OTHER WEEK (FORTNIGHTLY)
     Route: 058
     Dates: start: 20201020
  2. REMSIMA [Suspect]
     Active Substance: INFLIXIMAB
     Dosage: 120 MG PREFILLED PEN, EVERY OTHER WEEK (FORTNIGHTLY)
     Route: 058
     Dates: start: 20201111

REACTIONS (3)
  - Product dose omission issue [Unknown]
  - Influenza like illness [Unknown]
  - Lower respiratory tract infection [Unknown]

NARRATIVE: CASE EVENT DATE: 20201020
